FAERS Safety Report 6343643-0 (Version None)
Quarter: 2009Q3

REPORT INFORMATION
  Report Type: 
  Country: None (occurrence: None)
  Receive Date: 20090904
  Receipt Date: 20090904
  Transmission Date: 20100115
  Serious: No
  Sender: FDA-Public Use
  Company Number: None

PATIENT
  Age: 62 Year
  Sex: Male
  Weight: 104.5 kg

DRUGS (1)
  1. NEO/POLY/HC 1% OTIC SUSP 10ML GREEN [Suspect]
     Indication: EAR INFECTION
     Dosage: 3 DROPS 3 TIMES DAILY NEOMYCIN EAR DROPS FALCON
     Dates: start: 20090818

REACTIONS (4)
  - ERYTHEMA [None]
  - PRURITUS [None]
  - RASH [None]
  - SWELLING [None]
